FAERS Safety Report 5014068-5 (Version None)
Quarter: 2006Q2

REPORT INFORMATION
  Report Type: 
  Country: None (occurrence: None)
  Receive Date: 20060414
  Receipt Date: 20060111
  Transmission Date: 20061013
  Serious: No
  Sender: FDA-Public Use
  Company Number: 2006SP000183

PATIENT
  Age: 49 Year
  Sex: Female
  Weight: 55.3388 kg

DRUGS (3)
  1. LUNESTA [Suspect]
     Indication: INSOMNIA
     Dosage: 1 MG;HS;ORAL
     Route: 048
     Dates: start: 20051201
  2. SYNTHROID [Concomitant]
  3. ZYRTEC [Concomitant]

REACTIONS (1)
  - VISUAL DISTURBANCE [None]
